FAERS Safety Report 11135390 (Version 1)
Quarter: 2015Q2

REPORT INFORMATION
  Report Type: Spontaneous
  Country: GB (occurrence: GB)
  Receive Date: 20150525
  Receipt Date: 20150525
  Transmission Date: 20150821
  Serious: Yes (Other)
  Sender: FDA-Public Use
  Company Number: PHFR2015GB003960

PATIENT
  Age: 6 Year
  Sex: Male
  Weight: 36 kg

DRUGS (2)
  1. VALPROATE [Concomitant]
     Active Substance: VALPROATE SODIUM
     Indication: PRODUCT USED FOR UNKNOWN INDICATION
     Dosage: 600/500
     Route: 048
     Dates: start: 2014
  2. METHYLPHENIDATE [Suspect]
     Active Substance: METHYLPHENIDATE
     Indication: ATTENTION DEFICIT/HYPERACTIVITY DISORDER
     Dosage: 5 MG, UNK
     Route: 048

REACTIONS (1)
  - Swelling face [Recovered/Resolved]
